FAERS Safety Report 23152835 (Version 1)
Quarter: 2023Q4

REPORT INFORMATION
  Report Type: Report from Study
  Country: US (occurrence: US)
  Receive Date: 20231107
  Receipt Date: 20231107
  Transmission Date: 20240110
  Serious: Yes (Hospitalization)
  Sender: FDA-Public Use
  Company Number: US-Accord-388934

PATIENT
  Sex: Female
  Weight: 83.1 kg

DRUGS (1)
  1. CLOZAPINE [Suspect]
     Active Substance: CLOZAPINE
     Indication: Schizophrenia
     Dosage: 100MG EVERY 12 HOURS + 50MG AT BEDTIME (TOTAL DOSE OF 250MG DAILY)
     Route: 048

REACTIONS (3)
  - Mental status changes [Unknown]
  - Urinary tract infection [Unknown]
  - Electrolyte imbalance [Unknown]
